FAERS Safety Report 18350339 (Version 1)
Quarter: 2020Q4

REPORT INFORMATION
  Report Type: Spontaneous
  Country: US (occurrence: US)
  Receive Date: 20201006
  Receipt Date: 20201006
  Transmission Date: 20210114
  Serious: No
  Sender: FDA-Public Use
  Company Number: US-ROMARKLABS-2019-US-000201

PATIENT
  Age: 3 Year

DRUGS (1)
  1. ALINIA [Suspect]
     Active Substance: NITAZOXANIDE
     Indication: CESTODE INFECTION
     Route: 048
     Dates: start: 2019, end: 2019

REACTIONS (1)
  - Haematochezia [Recovered/Resolved]
